FAERS Safety Report 19889947 (Version 2)
Quarter: 2021Q4

REPORT INFORMATION
  Report Type: Spontaneous
  Country: GB (occurrence: GB)
  Receive Date: 20210928
  Receipt Date: 20211011
  Transmission Date: 20220303
  Serious: Yes (Hospitalization, Other)
  Sender: FDA-Public Use
  Company Number: GB-MLMSERVICE-2017112709796481

PATIENT
  Age: 10 Year
  Sex: Male
  Weight: 33 kg

DRUGS (5)
  1. METHOTREXATE [Suspect]
     Active Substance: METHOTREXATE
     Indication: Still^s disease
     Dosage: DOSE INCREASED TO 20 MG  (0.5MG/KG) WEEKLY, 30 MG WEEKLY
     Route: 058
  2. PREDNISOLONE [Concomitant]
     Active Substance: PREDNISOLONE
     Indication: Still^s disease
     Dosage: 25MG/DAY THEN INCREASED TO 40 MG DAILY
     Route: 048
  3. FOLIC ACID [Concomitant]
     Active Substance: FOLIC ACID
     Indication: Juvenile idiopathic arthritis
     Dosage: 5 MG
     Route: 048
  4. IBUPROFEN [Concomitant]
     Active Substance: IBUPROFEN
     Indication: Still^s disease
     Dosage: 400 MG, 200 MG  THREE TIMES A DAY
     Route: 048
  5. ONDANSETRON [Concomitant]
     Active Substance: ONDANSETRON
     Dosage: 4 MG BEFORE AND AFTER THE METHOTREXATE DOSE

REACTIONS (7)
  - Cutaneous vasculitis [Recovered/Resolved]
  - Nausea [Unknown]
  - Normocytic anaemia [Unknown]
  - Type III immune complex mediated reaction [Recovered/Resolved]
  - Hypertension [Unknown]
  - Abdominal pain upper [Unknown]
  - Cushingoid [Unknown]
